FAERS Safety Report 6175158-7 (Version None)
Quarter: 2009Q2

REPORT INFORMATION
  Report Type: 
  Country: None (occurrence: None)
  Receive Date: 20090430
  Receipt Date: 20090113
  Transmission Date: 20091009
  Serious: No
  Sender: FDA-Public Use
  Company Number: US-ASTRAZENECA-2009UW01075

PATIENT
  Age: 61 Year
  Sex: Female
  Weight: 70.3 kg

DRUGS (4)
  1. NEXIUM [Suspect]
     Indication: DYSPEPSIA
     Route: 048
     Dates: start: 20080101
  2. LEVAQUIN [Suspect]
     Dosage: UNKNOWN
     Route: 065
  3. MIACALCIN [Concomitant]
     Route: 045
  4. CLONAZEPAM [Concomitant]

REACTIONS (5)
  - DIARRHOEA [None]
  - HUNGER [None]
  - MUSCULAR WEAKNESS [None]
  - NAUSEA [None]
  - SOMNOLENCE [None]
